FAERS Safety Report 16938891 (Version 2)
Quarter: 2019Q4

REPORT INFORMATION
  Report Type: Report from Study
  Country: CO (occurrence: CO)
  Receive Date: 20191020
  Receipt Date: 20191129
  Transmission Date: 20200122
  Serious: Yes (Other)
  Sender: FDA-Public Use
  Company Number: NVSC2019CO007104

PATIENT
  Age: 69 Year
  Sex: Female
  Weight: 70 kg

DRUGS (4)
  1. LEVOTHYROXINE. [Concomitant]
     Active Substance: LEVOTHYROXINE
     Indication: HYPOTHYROIDISM
     Dosage: 25 MG, QD
     Route: 048
  2. MEKINIST [Suspect]
     Active Substance: TRAMETINIB DIMETHYL SULFOXIDE
     Indication: METASTATIC MALIGNANT MELANOMA
     Dosage: 2 MG, QD
     Route: 048
     Dates: start: 20190813
  3. TAFINLAR [Suspect]
     Active Substance: DABRAFENIB MESYLATE
     Indication: METASTATIC MALIGNANT MELANOMA
     Dosage: 300 MG, QD
     Route: 048
     Dates: start: 20190813
  4. LOSARTAN. [Suspect]
     Active Substance: LOSARTAN
     Indication: HYPERTENSION
     Dosage: 50 MG, Q12H
     Route: 048

REACTIONS (8)
  - Decreased appetite [Unknown]
  - Eye pain [Unknown]
  - Feeling of despair [Unknown]
  - Paraesthesia oral [Unknown]
  - Dizziness [Unknown]
  - Alcohol poisoning [Unknown]
  - Tremor [Unknown]
  - Fatigue [Unknown]

NARRATIVE: CASE EVENT DATE: 201910
